FAERS Safety Report 4911022-6 (Version None)
Quarter: 2006Q1

REPORT INFORMATION
  Report Type: 
  Country: None (occurrence: None)
  Receive Date: 20060214
  Receipt Date: 20060203
  Transmission Date: 20060701
  Serious: Yes (Hospitalization, Other)
  Sender: FDA-Public Use
  Company Number: US-AVENTIS-200611290US

PATIENT
  Sex: Female

DRUGS (5)
  1. LANTUS [Suspect]
     Dosage: DOSE UNIT: UNITS
  2. LANTUS [Suspect]
     Dosage: DOSE UNIT: UNITS
  3. LANTUS [Suspect]
     Dosage: DOSE UNIT: UNITS
  4. DRUG USED IN DIABETES [Suspect]
     Indication: DIABETES MELLITUS
     Route: 058
     Dates: start: 20051022
  5. PRANDIN [Concomitant]
     Dosage: DOSE: UNKNOWN

REACTIONS (10)
  - ASTHENIA [None]
  - BLOOD GLUCOSE DECREASED [None]
  - BLOOD GLUCOSE INCREASED [None]
  - DIABETES MELLITUS INADEQUATE CONTROL [None]
  - DIZZINESS [None]
  - HAEMOGLOBIN DECREASED [None]
  - HYPOGLYCAEMIA [None]
  - NAUSEA [None]
  - SOMOGYI PHENOMENON [None]
  - SYNCOPE [None]
